FAERS Safety Report 8875830 (Version 4)
Quarter: 2014Q1

REPORT INFORMATION
  Report Type: Spontaneous
  Country: US (occurrence: US)
  Receive Date: 20121023
  Receipt Date: 20140312
  Transmission Date: 20141002
  Serious: Yes (Hospitalization, Disabling, Other)
  Sender: FDA-Public Use
  Company Number: US-009507513-1203USA03382

PATIENT
  Sex: Female
  Weight: 86.17 kg

DRUGS (5)
  1. FOSAMAX [Suspect]
     Indication: OSTEOPOROSIS
     Dosage: 10 MG, UNK
     Route: 048
     Dates: start: 19990823, end: 200102
  2. FOSAMAX [Suspect]
     Indication: OSTEOPENIA
     Dosage: 70 MG, QW
     Route: 048
     Dates: start: 20010213, end: 20100412
  3. FOSAMAX [Suspect]
     Indication: OSTEOPOROSIS
     Route: 048
  4. FOSAMAX [Suspect]
     Indication: OSTEOPENIA
  5. VITAMINS (UNSPECIFIED) [Concomitant]
     Indication: PRODUCT USED FOR UNKNOWN INDICATION

REACTIONS (47)
  - Femur fracture [Recovering/Resolving]
  - Bone density decreased [Unknown]
  - Osteoporosis [Unknown]
  - Stress fracture [Not Recovered/Not Resolved]
  - Femur fracture [Unknown]
  - Fall [Unknown]
  - Open reduction of fracture [Recovering/Resolving]
  - Open reduction of fracture [Recovered/Resolved]
  - Muscular weakness [Unknown]
  - Foot fracture [Recovered/Resolved]
  - Fracture nonunion [Recovered/Resolved]
  - Foot fracture [Recovered/Resolved]
  - Foot fracture [Unknown]
  - Impaired healing [Unknown]
  - Foot fracture [Unknown]
  - Gingival recession [Unknown]
  - Vitamin D deficiency [Unknown]
  - Dyslipidaemia [Unknown]
  - Hormone therapy [Unknown]
  - Hypothyroidism [Unknown]
  - Foot fracture [Recovering/Resolving]
  - Device breakage [Unknown]
  - Muscle strain [Recovering/Resolving]
  - Road traffic accident [Recovering/Resolving]
  - Vitreous floaters [Unknown]
  - Retinal laser coagulation [Unknown]
  - Retinal detachment [Unknown]
  - Conjunctivitis allergic [Unknown]
  - Dry eye [Unknown]
  - Pupils unequal [Unknown]
  - Refraction disorder [Unknown]
  - Presbyopia [Unknown]
  - Amblyopia [Unknown]
  - Foot fracture [Unknown]
  - Foot fracture [Unknown]
  - Limb injury [Unknown]
  - Foot fracture [Unknown]
  - Limb injury [Unknown]
  - Anxiety [Unknown]
  - Patellofemoral pain syndrome [Unknown]
  - Depression [Unknown]
  - Urethral bulking agent injection [Unknown]
  - Foot fracture [Recovering/Resolving]
  - Cardiac murmur [Unknown]
  - Fall [Recovering/Resolving]
  - Amenorrhoea [Unknown]
  - Headache [Unknown]
